FAERS Safety Report 6557309-5 (Version None)
Quarter: 2010Q1

REPORT INFORMATION
  Report Type: 
  Country: None (occurrence: None)
  Receive Date: 20100127
  Receipt Date: 20100127
  Transmission Date: 20100710
  Serious: No
  Sender: FDA-Public Use
  Company Number: None

PATIENT
  Age: 37 Year
  Sex: Female
  Weight: 82.24 kg

DRUGS (2)
  1. PACLITAXEL [Suspect]
     Indication: BREAST CANCER
     Dosage: 153MG X2 IV DRIP
     Route: 041
     Dates: start: 20090806, end: 20090813
  2. HERCEPTIN [Suspect]
     Indication: BREAST CANCER
     Dosage: 166MG-332MG IV DRIP
     Route: 041
     Dates: start: 20090806, end: 20090910

REACTIONS (7)
  - COUGH [None]
  - DYSPNOEA EXERTIONAL [None]
  - FATIGUE [None]
  - HEADACHE [None]
  - PLEURITIC PAIN [None]
  - PNEUMONITIS [None]
  - RHONCHI [None]
